FAERS Safety Report 19853514 (Version 4)
Quarter: 2021Q4

REPORT INFORMATION
  Report Type: Report from Study
  Country: MX (occurrence: MX)
  Receive Date: 20210919
  Receipt Date: 20211021
  Transmission Date: 20220303
  Serious: Yes (Other)
  Sender: FDA-Public Use
  Company Number: NVSC2021MX183729

PATIENT
  Age: 70 Year
  Sex: Female
  Weight: 54 kg

DRUGS (6)
  1. VOTRIENT [Suspect]
     Active Substance: PAZOPANIB HYDROCHLORIDE
     Indication: Sarcoma
     Dosage: 1 DF, BID (200 MG)
     Route: 048
     Dates: start: 202107
  2. VOTRIENT [Suspect]
     Active Substance: PAZOPANIB HYDROCHLORIDE
     Dosage: 2 DF, QD (2 DF OF 200 MG)
     Route: 048
     Dates: start: 202107
  3. VOTRIENT [Suspect]
     Active Substance: PAZOPANIB HYDROCHLORIDE
     Dosage: 1 DF, BID (200 MG)
     Route: 048
     Dates: start: 20210720, end: 20211006
  4. RIOPAN [Concomitant]
     Indication: Abdominal discomfort
     Dosage: UNK, BID 1 (10 ML) (SOLUTION)
     Route: 048
     Dates: start: 202107
  5. DOLAC [Concomitant]
     Indication: Pain
     Dosage: 1 DF, BID
     Route: 048
     Dates: start: 202107
  6. DOLAC [Concomitant]
     Dosage: 100 MG, QD (START 2 MONTHS AGO)
     Route: 048

REACTIONS (14)
  - Cancer pain [Not Recovered/Not Resolved]
  - Hypoaesthesia [Not Recovered/Not Resolved]
  - Constipation [Not Recovered/Not Resolved]
  - Burning sensation [Not Recovered/Not Resolved]
  - Back pain [Not Recovered/Not Resolved]
  - Muscular weakness [Not Recovered/Not Resolved]
  - Asthenia [Not Recovered/Not Resolved]
  - Vomiting [Recovered/Resolved]
  - Vomiting [Not Recovered/Not Resolved]
  - Diarrhoea [Not Recovered/Not Resolved]
  - Gait disturbance [Unknown]
  - Fall [Unknown]
  - Inappropriate schedule of product administration [Unknown]
  - Off label use [Unknown]

NARRATIVE: CASE EVENT DATE: 20210720
